FAERS Safety Report 9213350 (Version 10)
Quarter: 2016Q3

REPORT INFORMATION
  Report Type: Report from Study
  Country: CA (occurrence: CA)
  Receive Date: 20130405
  Receipt Date: 20160721
  Transmission Date: 20161109
  Serious: Yes (Hospitalization, Other)
  Sender: FDA-Public Use
  Company Number: PHHY2012CA044340

PATIENT
  Age: 25 Year
  Sex: Male

DRUGS (3)
  1. SANDOSTATIN LAR DEPOT [Suspect]
     Active Substance: OCTREOTIDE ACETATE
     Indication: PANCREATIC NEUROENDOCRINE TUMOUR METASTATIC
     Dosage: 30 MG, QMO (EVERY 4 WEEKS)
     Route: 030
     Dates: start: 20111105
  2. SANDOSTATIN [Suspect]
     Active Substance: OCTREOTIDE ACETATE
     Indication: PANCREATIC NEUROENDOCRINE TUMOUR METASTATIC
     Dosage: 50 UG, UNK
     Route: 058
     Dates: start: 20111013
  3. DEXILANT [Concomitant]
     Active Substance: DEXLANSOPRAZOLE
     Indication: PRODUCT USED FOR UNKNOWN INDICATION
     Route: 065

REACTIONS (12)
  - Headache [Recovering/Resolving]
  - Injection site pain [Not Recovered/Not Resolved]
  - Nasopharyngitis [Recovering/Resolving]
  - Blood pressure systolic increased [Unknown]
  - Stress [Not Recovered/Not Resolved]
  - Dyspnoea [Unknown]
  - Blood pressure diastolic increased [Unknown]
  - Hypokinesia [Unknown]
  - Asthenia [Not Recovered/Not Resolved]
  - Metastases to liver [Unknown]
  - Heart rate decreased [Unknown]
  - Blood pressure increased [Unknown]

NARRATIVE: CASE EVENT DATE: 20150301
